FAERS Safety Report 16860453 (Version 1)
Quarter: 2019Q3

REPORT INFORMATION
  Report Type: Spontaneous
  Country: US (occurrence: US)
  Receive Date: 20190927
  Receipt Date: 20190927
  Transmission Date: 20191005
  Serious: No
  Sender: FDA-Public Use
  Company Number: US-BRISTOL-MYERS SQUIBB COMPANY-BMS-2019-093695

PATIENT
  Sex: Female
  Weight: 56.7 kg

DRUGS (3)
  1. OPDIVO [Suspect]
     Active Substance: NIVOLUMAB
     Indication: PERITONEAL NEOPLASM
     Dosage: ^1^, Q6WK
     Route: 065
     Dates: start: 20190913
  2. IBUPROFEN. [Concomitant]
     Active Substance: IBUPROFEN
     Indication: RESPIRATORY TRACT INFLAMMATION
     Route: 065
  3. YERVOY [Suspect]
     Active Substance: IPILIMUMAB
     Indication: PERITONEAL NEOPLASM
     Dosage: UNK UNK, Q2WK
     Route: 065
     Dates: start: 20190913

REACTIONS (3)
  - Blood cannabinoids [Unknown]
  - Intentional product use issue [Unknown]
  - Off label use [Unknown]
